FAERS Safety Report 4768231-9 (Version None)
Quarter: 2005Q3

REPORT INFORMATION
  Report Type: 
  Country: None (occurrence: None)
  Receive Date: 20050912
  Receipt Date: 20050824
  Transmission Date: 20060218
  Serious: Yes (Hospitalization)
  Sender: FDA-Public Use
  Company Number: CHPA2005US02585

PATIENT
  Age: 39 Year
  Sex: Male

DRUGS (9)
  1. PRIVATE LABEL STEP 1 21 MG ACCT UNKNOWN (NCH( (NICOTINE) TRANS-THERAPE [Suspect]
     Dosage: 21 MG, TRANSDERMAL
     Route: 062
  2. TICARCILLIN/CLAVULANATE POTASSIUM (CLAVULANATE POTASSIUM, TICARCILLIN) [Concomitant]
  3. TOBRAMYCIN [Concomitant]
  4. ALBUTEROL + IPRATROPIUM (IPRATROPIUM, SALBUTAMOL) [Concomitant]
  5. DEXTROSE W/POTASSIUM CHLORIDE (GLUCOSE, POTASSIUM CHLORIDE) [Concomitant]
  6. VANCOMYCIN [Concomitant]
  7. METHYLPREDNISOLONE [Concomitant]
  8. GATIFLOXACIN [Concomitant]
  9. OXYGEN (OXYGEN) [Concomitant]

REACTIONS (3)
  - INAPPROPRIATE ANTIDIURETIC HORMONE SECRETION [None]
  - LUNG DISORDER [None]
  - WHITE BLOOD CELL COUNT INCREASED [None]
